FAERS Safety Report 13967547 (Version 2)
Quarter: 2017Q3

REPORT INFORMATION
  Report Type: Spontaneous
  Country: US (occurrence: US)
  Receive Date: 20170914
  Receipt Date: 20170918
  Transmission Date: 20171128
  Serious: No
  Sender: FDA-Public Use
  Company Number: US-PFIZER INC-2017393028

PATIENT
  Age: 5 Year
  Sex: Male
  Weight: 16 kg

DRUGS (1)
  1. GENOTROPIN [Suspect]
     Active Substance: SOMATROPIN
     Indication: GROWTH HORMONE DEFICIENCY
     Dosage: 0.8 MG ONCE GIVEN IN THIGH ARMS OR BOTTOM OR BELLY

REACTIONS (2)
  - Device issue [Unknown]
  - Drug dose omission [Unknown]
